FAERS Safety Report 9419969 (Version 1)
Quarter: 2013Q3

REPORT INFORMATION
  Report Type: Report from Study
  Country: PR (occurrence: PR)
  Receive Date: 20130725
  Receipt Date: 20130725
  Transmission Date: 20140515
  Serious: Yes (Hospitalization, Other)
  Sender: FDA-Public Use
  Company Number: PR-ABBOTT-13P-131-1102395-00

PATIENT
  Age: 47 Year
  Sex: Female
  Weight: 95.34 kg

DRUGS (2)
  1. HUMIRA [Suspect]
     Indication: RHEUMATOID ARTHRITIS
     Route: 058
     Dates: start: 2007, end: 20130624
  2. HUMIRA [Suspect]
     Route: 058
     Dates: start: 20130708

REACTIONS (4)
  - Umbilical hernia [Recovered/Resolved]
  - Nasopharyngitis [Recovered/Resolved]
  - Dehydration [Recovered/Resolved]
  - Colitis ulcerative [Recovered/Resolved]
